FAERS Safety Report 5822357-7 (Version None)
Quarter: 2008Q3

REPORT INFORMATION
  Report Type: 
  Country: None (occurrence: None)
  Receive Date: 20080725
  Receipt Date: 20080716
  Transmission Date: 20090109
  Serious: Yes (Other)
  Sender: FDA-Public Use
  Company Number: ES-AMGEN-UK295567

PATIENT
  Sex: Female

DRUGS (2)
  1. NEULASTA [Suspect]
     Indication: DRUG USE FOR UNKNOWN INDICATION
  2. NEUPOGEN [Concomitant]

REACTIONS (1)
  - ANAPHYLACTIC REACTION [None]
